FAERS Safety Report 13070896 (Version 1)
Quarter: 2016Q4

REPORT INFORMATION
  Report Type: Other
  Country: US (occurrence: US)
  Receive Date: 20161229
  Receipt Date: 20161229
  Transmission Date: 20170207
  Serious: Yes (Other)
  Sender: FDA-Public Use
  Company Number: US-LUPIN PHARMACEUTICALS INC.-2016-05795

PATIENT
  Age: 40 Year
  Sex: Female

DRUGS (4)
  1. QUETIAPINE EXTENDED-RELEASE (XR) [Suspect]
     Active Substance: QUETIAPINE
     Indication: INSOMNIA
     Route: 065
  2. GABAPENTIN. [Concomitant]
     Active Substance: GABAPENTIN
     Indication: INSOMNIA
     Route: 065
  3. GABAPENTIN. [Concomitant]
     Active Substance: GABAPENTIN
     Indication: ANXIETY
  4. QUETIAPINE EXTENDED-RELEASE (XR) [Suspect]
     Active Substance: QUETIAPINE
     Indication: ANXIETY

REACTIONS (2)
  - Orthostatic hypotension [Unknown]
  - Product use issue [Unknown]
